FAERS Safety Report 11369509 (Version 1)
Quarter: 2015Q3

REPORT INFORMATION
  Report Type: Spontaneous
  Country: US (occurrence: None)
  Receive Date: 20150811
  Receipt Date: 20150811
  Transmission Date: 20151125
  Serious: Yes (Hospitalization)
  Sender: FDA-Public Use
  Company Number: None

PATIENT
  Age: 67 Year
  Sex: Female
  Weight: 62.14 kg

DRUGS (3)
  1. AFLIBERCEPT [Suspect]
     Active Substance: AFLIBERCEPT
     Indication: RECTAL ADENOCARCINOMA
     Dosage: Q2 WEEKS
     Dates: start: 201504, end: 20150729
  2. MFLOFOX [Suspect]
     Active Substance: FLUOROURACIL\LEUCOVORIN CALCIUM\OXALIPLATIN
     Indication: RECTAL ADENOCARCINOMA
     Dosage: Q2WEEKS
     Dates: start: 20150415, end: 20150729
  3. FLUOROURACIL. [Concomitant]
     Active Substance: FLUOROURACIL

REACTIONS (5)
  - Proctalgia [None]
  - Chills [None]
  - Discomfort [None]
  - Hyperhidrosis [None]
  - Rectal discharge [None]

NARRATIVE: CASE EVENT DATE: 20150808
